FAERS Safety Report 4430524-2 (Version None)
Quarter: 2004Q3

REPORT INFORMATION
  Report Type: 
  Country: None (occurrence: None)
  Receive Date: 20040721
  Receipt Date: 20031119
  Transmission Date: 20050211
  Serious: Yes (Life-Threatening, Hospitalization)
  Sender: FDA-Public Use
  Company Number: OMPQ-PR-0311S-0913(0)

PATIENT
  Age: 23 Year
  Sex: Female
  Weight: 69.4003 kg

DRUGS (4)
  1. OMNIPAQUE 180 [Suspect]
     Indication: HAEMATURIA
     Dosage: 100 ML, SINGLE DOSE, I.V.
     Route: 042
     Dates: start: 20031119, end: 20031119
  2. MEDROXYPROGESTERONE ACETATE (DEPO-PROVERA) [Concomitant]
  3. TYLENOL [Concomitant]
  4. NAPROSYN [Concomitant]

REACTIONS (1)
  - ANAPHYLACTIC REACTION [None]
